FAERS Safety Report 10141744 (Version 1)
Quarter: 2014Q2

REPORT INFORMATION
  Report Type: Spontaneous
  Country: US (occurrence: US)
  Receive Date: 20140429
  Receipt Date: 20140429
  Transmission Date: 20141212
  Serious: No
  Sender: FDA-Public Use
  Company Number: US-GILEAD-2014-0100527

PATIENT
  Age: 55 Year
  Sex: Male

DRUGS (4)
  1. SOVALDI [Suspect]
     Indication: HEPATITIS C
     Dosage: 400 MG, BID
     Route: 048
     Dates: start: 20140403
  2. SIMEPREVIR [Concomitant]
  3. LOSARTAN [Concomitant]
  4. TAMSULOSIN [Concomitant]

REACTIONS (2)
  - Headache [Unknown]
  - Overdose [Unknown]
